FAERS Safety Report 13342549 (Version 4)
Quarter: 2017Q3

REPORT INFORMATION
  Report Type: Report from Study
  Country: US (occurrence: US)
  Receive Date: 20170316
  Receipt Date: 20170731
  Transmission Date: 20171127
  Serious: Yes (Hospitalization)
  Sender: FDA-Public Use
  Company Number: US-JNJFOC-20170123623

PATIENT
  Age: 78 Year
  Sex: Male

DRUGS (14)
  1. IMBRUVICA [Suspect]
     Active Substance: IBRUTINIB
     Indication: SMALL INTESTINE CARCINOMA
     Route: 048
     Dates: start: 20161229
  2. IMBRUVICA [Suspect]
     Active Substance: IBRUTINIB
     Indication: SMALL INTESTINE CARCINOMA
     Route: 048
     Dates: start: 20170105
  3. IMBRUVICA [Suspect]
     Active Substance: IBRUTINIB
     Indication: LYMPHADENOPATHY
     Route: 048
     Dates: start: 20170105
  4. IMBRUVICA [Suspect]
     Active Substance: IBRUTINIB
     Indication: LYMPHADENOPATHY
     Route: 048
     Dates: start: 20161229
  5. IMBRUVICA [Suspect]
     Active Substance: IBRUTINIB
     Indication: WHITE BLOOD CELL COUNT INCREASED
     Route: 048
     Dates: start: 20161229
  6. IMBRUVICA [Suspect]
     Active Substance: IBRUTINIB
     Indication: CHRONIC LYMPHOCYTIC LEUKAEMIA
     Route: 048
     Dates: start: 20161227, end: 2017
  7. IBUPROFEN. [Concomitant]
     Active Substance: IBUPROFEN
  8. IMBRUVICA [Suspect]
     Active Substance: IBRUTINIB
     Indication: LYMPHADENOPATHY
     Route: 048
     Dates: start: 20161227, end: 2017
  9. IMBRUVICA [Suspect]
     Active Substance: IBRUTINIB
     Indication: SMALL INTESTINE CARCINOMA
     Route: 048
     Dates: start: 20161227, end: 2017
  10. IMBRUVICA [Suspect]
     Active Substance: IBRUTINIB
     Indication: WHITE BLOOD CELL COUNT INCREASED
     Route: 048
     Dates: start: 20161227, end: 2017
  11. IMBRUVICA [Suspect]
     Active Substance: IBRUTINIB
     Indication: WHITE BLOOD CELL COUNT INCREASED
     Route: 048
     Dates: start: 20170105
  12. IMBRUVICA [Suspect]
     Active Substance: IBRUTINIB
     Indication: CHRONIC LYMPHOCYTIC LEUKAEMIA
     Route: 048
     Dates: start: 20161229
  13. IMBRUVICA [Suspect]
     Active Substance: IBRUTINIB
     Indication: CHRONIC LYMPHOCYTIC LEUKAEMIA
     Route: 048
     Dates: start: 20170105
  14. PHENERGAN [Concomitant]
     Active Substance: PROMETHAZINE HYDROCHLORIDE

REACTIONS (8)
  - Dyspnoea [Not Recovered/Not Resolved]
  - Pleural effusion [Unknown]
  - Pneumonia [Recovered/Resolved]
  - Off label use [Recovered/Resolved]
  - Blood count abnormal [Recovered/Resolved]
  - Product use in unapproved indication [Recovered/Resolved]
  - Renal disorder [Unknown]
  - Adverse event [Unknown]

NARRATIVE: CASE EVENT DATE: 20161227
